FAERS Safety Report 10146513 (Version 1)
Quarter: 2014Q2

REPORT INFORMATION
  Report Type: Spontaneous
  Country: US (occurrence: None)
  Receive Date: 20140429
  Receipt Date: 20140429
  Transmission Date: 20141212
  Serious: Yes (Other)
  Sender: FDA-Public Use
  Company Number: IPC201404-000181

PATIENT
  Age: 86 Year
  Sex: Female

DRUGS (5)
  1. WARFARIN [Suspect]
     Indication: DEEP VEIN THROMBOSIS
  2. TERIPARATIDE [Suspect]
     Dosage: STOPPED
     Route: 058
  3. PREDNISONE [Suspect]
     Indication: POLYMYALGIA RHEUMATICA
  4. VITAMIN D [Concomitant]
  5. CALCIUM [Concomitant]

REACTIONS (5)
  - Calciphylaxis [None]
  - Deep vein thrombosis [None]
  - Blood alkaline phosphatase increased [None]
  - Antinuclear antibody positive [None]
  - Fibrin D dimer increased [None]
